FAERS Safety Report 8383780-2 (Version None)
Quarter: 2012Q2

REPORT INFORMATION
  Report Type: 
  Country: None (occurrence: None)
  Receive Date: 20120524
  Receipt Date: 20080317
  Transmission Date: 20120825
  Serious: Yes (Death, Hospitalization, Other)
  Sender: FDA-Public Use
  Company Number: US-ROCHE-1034531

PATIENT
  Sex: Male
  Weight: 81.266 kg

DRUGS (10)
  1. MULTIVITAMINS W IRON + ZINC [Concomitant]
     Dosage: 1 TAB DAILY
     Route: 048
  2. POTASSIUM CHLORIDE [Concomitant]
     Route: 048
  3. PREVACID [Concomitant]
     Route: 048
  4. ZAROXOLYN [Concomitant]
     Route: 048
  5. LASIX [Concomitant]
     Route: 048
  6. RITUXAN [Suspect]
     Indication: PRODUCT USED FOR UNKNOWN INDICATION
     Route: 042
     Dates: start: 20061218, end: 20070814
  7. COREG [Concomitant]
     Dosage: HALF TAB DAILY
     Route: 048
  8. SENOKOT [Concomitant]
     Dosage: 1 TAB DAILY
     Route: 048
  9. PROZAC [Concomitant]
     Route: 048
  10. PREDNISONE [Concomitant]
     Route: 048

REACTIONS (10)
  - CHOLECYSTECTOMY [None]
  - ASTHENIA [None]
  - DYSPNOEA [None]
  - VASCULAR GRAFT [None]
  - PERIPHERAL ARTERIAL OCCLUSIVE DISEASE [None]
  - DYSPHAGIA [None]
  - CORONARY ARTERY DISEASE [None]
  - DEPRESSION [None]
  - CARDIAC FAILURE CONGESTIVE [None]
  - MITRAL VALVE INCOMPETENCE [None]
